FAERS Safety Report 6879468-7 (Version None)
Quarter: 2010Q3

REPORT INFORMATION
  Report Type: 
  Country: None (occurrence: None)
  Receive Date: 20100728
  Receipt Date: 20090616
  Transmission Date: 20110219
  Serious: No
  Sender: FDA-Public Use
  Company Number: US-PFIZER INC-2009187675

PATIENT
  Sex: Male

DRUGS (18)
  1. CHANTIX [Suspect]
     Indication: SMOKING CESSATION THERAPY
     Dosage: 1 MG, 2X/DAY
     Dates: start: 20090312
  2. OXYCODONE [Concomitant]
     Dosage: 30 MG, UNK
  3. OXYCONTIN [Concomitant]
     Dosage: 10 MG, UNK
  4. ZANAFLEX [Concomitant]
     Dosage: 4 MG, UNK
  5. GLUCOVANCE [Concomitant]
     Indication: DIABETES MELLITUS
     Dosage: UNK
  6. AMITIZA [Concomitant]
     Dosage: UNK
  7. PROMETHAZINE HYDROCHLORIDE [Concomitant]
     Dosage: UNK
  8. PHRENILIN [Concomitant]
     Indication: HEADACHE
     Dosage: BUTALBITAL:50MG/ ACETAMINOPHEN650MG, AS NEEDED
  9. MAXALT [Concomitant]
     Indication: HEADACHE
     Dosage: 10 MG, AS NEEDED
  10. PROTONIX [Concomitant]
     Dosage: 25 MG, UNK
  11. NEXIUM [Concomitant]
     Dosage: 25 MG, UNK
  12. CARAFATE [Concomitant]
     Dosage: UNK
  13. REGLAN [Concomitant]
     Dosage: UNK
  14. TAMSULOSIN [Concomitant]
  15. AMBIEN [Concomitant]
     Dosage: 12.5 MG, AS NEEDED
  16. ALLEGRA [Concomitant]
     Dosage: 60 MG, 2X/DAY
  17. MIRALAX [Concomitant]
     Indication: PULMONARY CONGESTION
  18. LYRICA [Suspect]
     Dosage: 200 MG, 2X/DAY

REACTIONS (2)
  - DIARRHOEA [None]
  - GASTROINTESTINAL PAIN [None]
